FAERS Safety Report 15312796 (Version 1)
Quarter: 2018Q3

REPORT INFORMATION
  Report Type: Report from Study
  Country: CO (occurrence: CO)
  Receive Date: 20180823
  Receipt Date: 20180823
  Transmission Date: 20181010
  Serious: Yes (Death, Hospitalization)
  Sender: FDA-Public Use
  Company Number: CO-SA-2018SA221931

PATIENT
  Age: 76 Year
  Sex: Male

DRUGS (2)
  1. INSULIN GLULISINE [Suspect]
     Active Substance: INSULIN GLULISINE
     Indication: TYPE 2 DIABETES MELLITUS
     Dosage: 6 IU, BID
     Route: 058
     Dates: start: 201711, end: 20180524
  2. INSULIN GLARGINE [Suspect]
     Active Substance: INSULIN GLARGINE
     Indication: TYPE 2 DIABETES MELLITUS
     Dosage: 17 IU, QD
     Route: 058
     Dates: start: 201711, end: 20180524

REACTIONS (3)
  - Cardio-respiratory arrest [Fatal]
  - Disease complication [Unknown]
  - Multiple drug therapy [Unknown]

NARRATIVE: CASE EVENT DATE: 20180520
